FAERS Safety Report 8433400-3 (Version None)
Quarter: 2012Q2

REPORT INFORMATION
  Report Type: 
  Country: None (occurrence: None)
  Receive Date: 20120607
  Receipt Date: 20120522
  Transmission Date: 20120825
  Serious: Yes (Hospitalization)
  Sender: FDA-Public Use
  Company Number: EU-2012-10115

PATIENT
  Sex: Male

DRUGS (2)
  1. SAMSCA [Suspect]
     Indication: INAPPROPRIATE ANTIDIURETIC HORMONE SECRETION
     Dosage: 15 MG MILLIGRAM(S), QD,
  2. TOPOTECAN [Concomitant]

REACTIONS (5)
  - DRUG INEFFECTIVE [None]
  - MEDICATION ERROR [None]
  - SOMNOLENCE [None]
  - DISORIENTATION [None]
  - HYPONATRAEMIA [None]
